FAERS Safety Report 9411844 (Version 2)
Quarter: 2013Q3

REPORT INFORMATION
  Report Type: Spontaneous
  Country: US (occurrence: None)
  Receive Date: 20130508
  Receipt Date: 20130815
  Transmission Date: 20140515
  Serious: Yes (Hospitalization, Other)
  Sender: FDA-Public Use
  Company Number: ADR-2013-00482

PATIENT
  Age: 40 Year
  Sex: Female

DRUGS (3)
  1. BACLOFEN INTRATHECAL [Suspect]
     Indication: POST LAMINECTOMY SYNDROME
  2. BUPIVACAINE [Concomitant]
  3. DILAUDID (HYDROMORPHONE) [Concomitant]

REACTIONS (30)
  - Vibratory sense increased [None]
  - Burning sensation [None]
  - Myalgia [None]
  - Pain [None]
  - Formication [None]
  - Hypersensitivity [None]
  - Wheezing [None]
  - Gastric disorder [None]
  - Hypophagia [None]
  - Medical device complication [None]
  - Intestinal obstruction [None]
  - Spinal disorder [None]
  - Muscle spasms [None]
  - Myoclonus [None]
  - Ureteral disorder [None]
  - Joint dislocation [None]
  - Dyspnoea [None]
  - Sleep disorder [None]
  - Erythema [None]
  - Neck pain [None]
  - No therapeutic response [None]
  - Unevaluable event [None]
  - Medical device discomfort [None]
  - Hypersensitivity [None]
  - Aphagia [None]
  - Dyspnoea [None]
  - Emotional distress [None]
  - Swelling [None]
  - Erythema [None]
  - Complex regional pain syndrome [None]
